FAERS Safety Report 18843101 (Version 1)
Quarter: 2021Q1

REPORT INFORMATION
  Report Type: Report from Study
  Country: US (occurrence: US)
  Receive Date: 20210203
  Receipt Date: 20210203
  Transmission Date: 20210419
  Serious: No
  Sender: FDA-Public Use
  Company Number: US-EXELIXIS-CABO-20026582

PATIENT
  Sex: Male

DRUGS (2)
  1. CABOMETYX [Suspect]
     Active Substance: CABOZANTINIB S-MALATE
     Dosage: 40 MG, QD
     Route: 048
  2. CABOMETYX [Suspect]
     Active Substance: CABOZANTINIB S-MALATE
     Indication: RENAL CELL CARCINOMA
     Dosage: 60 MG, QD
     Route: 048
     Dates: end: 20191229

REACTIONS (10)
  - Diarrhoea [Unknown]
  - Arthralgia [Recovering/Resolving]
  - Weight decreased [Recovering/Resolving]
  - Fatigue [Unknown]
  - Glossodynia [Recovering/Resolving]
  - Diplopia [Recovering/Resolving]
  - Mucosal inflammation [Recovering/Resolving]
  - Balance disorder [Recovering/Resolving]
  - Decreased appetite [Unknown]
  - Taste disorder [Recovering/Resolving]
